FAERS Safety Report 25274021 (Version 1)
Quarter: 2025Q2

REPORT INFORMATION
  Report Type: Spontaneous
  Country: DE (occurrence: DE)
  Receive Date: 20250506
  Receipt Date: 20250506
  Transmission Date: 20250717
  Serious: Yes (Disabling, Congenital Anomaly)
  Sender: UCB
  Company Number: DE-EMB-M202012423-1

PATIENT
  Sex: Male
  Weight: 3.7 kg

DRUGS (6)
  1. VIMPAT [Suspect]
     Active Substance: LACOSAMIDE
     Indication: Epilepsy
     Dosage: 100 MILLIGRAM, 2X/DAY (BID) INITIAL 200MG DAILY (100-0-100), DOSAGE GRADUALLY INCREASED TO 300MG DAI
     Route: 064
     Dates: start: 202002, end: 202009
  2. VIMPAT [Suspect]
     Active Substance: LACOSAMIDE
     Route: 064
     Dates: start: 202009, end: 202009
  3. VIMPAT [Suspect]
     Active Substance: LACOSAMIDE
     Dosage: 150 MILLIGRAM, 2X/DAY (BID)
     Route: 064
     Dates: start: 202009, end: 202011
  4. LEVETIRACETAM [Suspect]
     Active Substance: LEVETIRACETAM
     Indication: Epilepsy
     Dosage: 1500 MILLIGRAM, 2X/DAY (BID), INITIAL 3000MG DAILY (1500-0-1500), DOSAGE INCREASED TO MAX 4000MG DAI
     Route: 064
     Dates: start: 202002, end: 202008
  5. LEVETIRACETAM [Suspect]
     Active Substance: LEVETIRACETAM
     Route: 064
     Dates: start: 202008, end: 202008
  6. LEVETIRACETAM [Suspect]
     Active Substance: LEVETIRACETAM
     Dosage: 2000 MILLIGRAM, 2X/DAY (BID)
     Route: 064
     Dates: start: 202008, end: 202011

REACTIONS (2)
  - Cataract congenital [Recovered/Resolved with Sequelae]
  - Maternal exposure during pregnancy [Unknown]
